FAERS Safety Report 6918850-6 (Version None)
Quarter: 2010Q3

REPORT INFORMATION
  Report Type: 
  Country: None (occurrence: None)
  Receive Date: 20100811
  Receipt Date: 20100727
  Transmission Date: 20110219
  Serious: Yes (Hospitalization, Other)
  Sender: FDA-Public Use
  Company Number: US-ELI_LILLY_AND_COMPANY-US201008001246

PATIENT
  Sex: Female

DRUGS (10)
  1. FORTEO [Suspect]
     Indication: OSTEOPOROSIS
     Dosage: 20 UG, DAILY (1/D)
  2. FUROSEMIDE [Concomitant]
     Dosage: 40 MG, DAILY (1/D)
  3. PROTONIX [Concomitant]
     Dosage: 40 MG, DAILY (1/D)
  4. POTASSIUM [Concomitant]
     Dosage: 10 MEQ, DAILY (1/D)
  5. METOPROLOL [Concomitant]
     Dosage: 25 MG, DAILY (1/D)
  6. SIMVASTATIN [Concomitant]
     Dosage: 40 MG, DAILY (1/D)
  7. ASPIRIN [Concomitant]
     Dosage: 81 MG, 2/D
  8. LOVAZA [Concomitant]
  9. CALCIUM [Concomitant]
  10. MULTI-VIT [Concomitant]

REACTIONS (6)
  - CEREBROVASCULAR ACCIDENT [None]
  - CORONARY ARTERY OCCLUSION [None]
  - HOSPITALISATION [None]
  - MYOCARDIAL INFARCTION [None]
  - PAIN [None]
  - PAIN IN EXTREMITY [None]
